FAERS Safety Report 8504828 (Version 2)
Quarter: 2012Q4

REPORT INFORMATION
  Report Type: Report from Study
  Country: US (occurrence: US)
  Receive Date: 20120411
  Receipt Date: 20121221
  Transmission Date: 20130627
  Serious: Yes (Congenital Anomaly)
  Sender: FDA-Public Use
  Company Number: US-ROCHE-GNE311204

PATIENT

DRUGS (1)
  1. OMALIZUMAB [Suspect]
     Indication: ASTHMA
     Dosage: 375 mg, Q3W
     Route: 064
     Dates: start: 20090304, end: 20091201

REACTIONS (2)
  - Arteriovenous malformation [Not Recovered/Not Resolved]
  - Maternal exposure timing unspecified [Unknown]
